FAERS Safety Report 19806818 (Version 1)
Quarter: 2021Q3

REPORT INFORMATION
  Report Type: Spontaneous
  Country: PE (occurrence: PE)
  Receive Date: 20210909
  Receipt Date: 20210909
  Transmission Date: 20211014
  Serious: Yes (Other)
  Sender: FDA-Public Use
  Company Number: PE-ROCHE-2905270

PATIENT
  Age: 34 Week

DRUGS (1)
  1. PULMOZYME [Suspect]
     Active Substance: DORNASE ALFA
     Indication: CYSTIC FIBROSIS
     Dosage: DOSE AND FREQUENCY WERE NOT REPORTED
     Route: 065

REACTIONS (5)
  - Pneumothorax [Unknown]
  - Off label use [Unknown]
  - Pneumonitis [Unknown]
  - Acute lung injury [Unknown]
  - Cartilage development disorder [Unknown]
